FAERS Safety Report 7158849-0 (Version None)
Quarter: 2010Q4

REPORT INFORMATION
  Report Type: 
  Country: None (occurrence: None)
  Receive Date: 20101214
  Receipt Date: 20100712
  Transmission Date: 20110411
  Serious: No
  Sender: FDA-Public Use
  Company Number: US-ASTRAZENECA-2010SE32374

PATIENT
  Age: 74 Year
  Sex: Female
  Weight: 81.2 kg

DRUGS (4)
  1. CRESTOR [Suspect]
     Indication: BLOOD CHOLESTEROL INCREASED
     Route: 048
     Dates: start: 20091101
  2. ZOCOR [Suspect]
     Indication: BLOOD CHOLESTEROL INCREASED
     Dosage: QD
     Route: 048
  3. HIGH BLOOD PRESSURE MEDICINE [Concomitant]
     Indication: HYPERTENSION
  4. SYNTHROID [Concomitant]
     Indication: THYROID DISORDER

REACTIONS (3)
  - GASTRIC ULCER [None]
  - MUSCULAR WEAKNESS [None]
  - MYALGIA [None]
